FAERS Safety Report 16404710 (Version 2)
Quarter: 2019Q2

REPORT INFORMATION
  Report Type: Spontaneous
  Country: US (occurrence: US)
  Receive Date: 20190607
  Receipt Date: 20190617
  Transmission Date: 20190711
  Serious: Yes (Hospitalization, Other)
  Sender: FDA-Public Use
  Company Number: US-TEVA-2019-US-1058211

PATIENT
  Age: 75 Year
  Sex: Female

DRUGS (4)
  1. AMLODIPINE [Suspect]
     Active Substance: AMLODIPINE BESYLATE
     Route: 065
  2. LISINOPRIL. [Suspect]
     Active Substance: LISINOPRIL
     Route: 065
  3. HYDRALAZINE [Concomitant]
     Active Substance: HYDRALAZINE HYDROCHLORIDE
  4. PRAVASTATIN. [Suspect]
     Active Substance: PRAVASTATIN
     Indication: BLOOD CHOLESTEROL
     Route: 065
     Dates: start: 20170719

REACTIONS (12)
  - Dizziness [Not Recovered/Not Resolved]
  - Fatigue [Not Recovered/Not Resolved]
  - Swelling face [Unknown]
  - Peripheral swelling [Not Recovered/Not Resolved]
  - Vein rupture [Not Recovered/Not Resolved]
  - Malaise [Unknown]
  - Joint swelling [Not Recovered/Not Resolved]
  - Headache [Unknown]
  - Hip surgery [Unknown]
  - Insomnia [Unknown]
  - Lip swelling [Unknown]
  - Tinnitus [Unknown]

NARRATIVE: CASE EVENT DATE: 20180720
